FAERS Safety Report 25710027 (Version 1)
Quarter: 2025Q3

REPORT INFORMATION
  Report Type: Spontaneous
  Country: EU (occurrence: EU)
  Receive Date: 20250821
  Receipt Date: 20250821
  Transmission Date: 20251020
  Serious: Yes (Hospitalization)
  Sender: MYLAN
  Company Number: None

PATIENT
  Age: 84 Year
  Sex: Male
  Weight: 85 kg

DRUGS (24)
  1. DABIGATRAN [Suspect]
     Active Substance: DABIGATRAN
     Indication: Atrial fibrillation
     Dosage: 110 MILLIGRAM, BID
     Dates: end: 20241228
  2. DABIGATRAN [Suspect]
     Active Substance: DABIGATRAN
     Dosage: 110 MILLIGRAM, BID
     Route: 048
     Dates: end: 20241228
  3. DABIGATRAN [Suspect]
     Active Substance: DABIGATRAN
     Dosage: 110 MILLIGRAM, BID
     Route: 048
     Dates: end: 20241228
  4. DABIGATRAN [Suspect]
     Active Substance: DABIGATRAN
     Dosage: 110 MILLIGRAM, BID
     Dates: end: 20241228
  5. PERINDOPRIL [Suspect]
     Active Substance: PERINDOPRIL
     Indication: Hypertension
     Dosage: 5 MILLIGRAM, QD
     Dates: start: 20241228
  6. PERINDOPRIL [Suspect]
     Active Substance: PERINDOPRIL
     Dosage: 5 MILLIGRAM, QD
     Route: 048
     Dates: start: 20241228
  7. PERINDOPRIL [Suspect]
     Active Substance: PERINDOPRIL
     Dosage: 5 MILLIGRAM, QD
     Route: 048
     Dates: start: 20241228
  8. PERINDOPRIL [Suspect]
     Active Substance: PERINDOPRIL
     Dosage: 5 MILLIGRAM, QD
     Dates: start: 20241228
  9. NAPROXEN [Suspect]
     Active Substance: NAPROXEN
     Indication: Back pain
     Dosage: 660 MILLIGRAM, BID
     Dates: start: 20241226, end: 20241228
  10. NAPROXEN [Suspect]
     Active Substance: NAPROXEN
     Dosage: 660 MILLIGRAM, BID
     Route: 048
     Dates: start: 20241226, end: 20241228
  11. NAPROXEN [Suspect]
     Active Substance: NAPROXEN
     Dosage: 660 MILLIGRAM, BID
     Route: 048
     Dates: start: 20241226, end: 20241228
  12. NAPROXEN [Suspect]
     Active Substance: NAPROXEN
     Dosage: 660 MILLIGRAM, BID
     Dates: start: 20241226, end: 20241228
  13. FUROSEMIDE [Concomitant]
     Active Substance: FUROSEMIDE
     Indication: Hypertension
     Dosage: 80 MILLIGRAM, QD
  14. FUROSEMIDE [Concomitant]
     Active Substance: FUROSEMIDE
     Dosage: 80 MILLIGRAM, QD
     Route: 048
  15. FUROSEMIDE [Concomitant]
     Active Substance: FUROSEMIDE
     Dosage: 80 MILLIGRAM, QD
     Route: 048
  16. FUROSEMIDE [Concomitant]
     Active Substance: FUROSEMIDE
     Dosage: 80 MILLIGRAM, QD
  17. METFORMIN HYDROCHLORIDE [Concomitant]
     Active Substance: METFORMIN HYDROCHLORIDE
     Indication: Diabetes mellitus
     Dosage: 1 GRAM, BID
     Dates: end: 20241228
  18. METFORMIN HYDROCHLORIDE [Concomitant]
     Active Substance: METFORMIN HYDROCHLORIDE
     Dosage: 1 GRAM, BID
     Route: 048
     Dates: end: 20241228
  19. METFORMIN HYDROCHLORIDE [Concomitant]
     Active Substance: METFORMIN HYDROCHLORIDE
     Dosage: 1 GRAM, BID
     Route: 048
     Dates: end: 20241228
  20. METFORMIN HYDROCHLORIDE [Concomitant]
     Active Substance: METFORMIN HYDROCHLORIDE
     Dosage: 1 GRAM, BID
     Dates: end: 20241228
  21. ESOMEPRAZOLE [Concomitant]
     Active Substance: ESOMEPRAZOLE
     Indication: Prophylaxis
  22. ESOMEPRAZOLE [Concomitant]
     Active Substance: ESOMEPRAZOLE
     Route: 048
  23. ESOMEPRAZOLE [Concomitant]
     Active Substance: ESOMEPRAZOLE
     Route: 048
  24. ESOMEPRAZOLE [Concomitant]
     Active Substance: ESOMEPRAZOLE

REACTIONS (2)
  - Gastrointestinal haemorrhage [Recovering/Resolving]
  - Acute kidney injury [Recovering/Resolving]

NARRATIVE: CASE EVENT DATE: 20241228
